FAERS Safety Report 8987392 (Version 2)
Quarter: 2013Q2

REPORT INFORMATION
  Report Type: Report from Study
  Country: CA (occurrence: CA)
  Receive Date: 20121226
  Receipt Date: 20130523
  Transmission Date: 20140414
  Serious: Yes (Other)
  Sender: FDA-Public Use
  Company Number: CA-ROCHE-1168959

PATIENT
  Age: 60 Year
  Sex: Female
  Weight: 60 kg

DRUGS (4)
  1. TOCILIZUMAB [Suspect]
     Indication: RHEUMATOID ARTHRITIS
     Route: 042
     Dates: start: 20120612
  2. FOLIC ACID [Concomitant]
  3. TYLENOL #3 (CANADA) [Concomitant]
  4. METHOTREXATE [Concomitant]

REACTIONS (2)
  - Arthrodesis [Recovered/Resolved]
  - Arthrodesis [Recovered/Resolved]
